FAERS Safety Report 10586990 (Version 1)
Quarter: 2014Q4

REPORT INFORMATION
  Report Type: Spontaneous
  Country: US (occurrence: None)
  Receive Date: 20141114
  Receipt Date: 20141114
  Transmission Date: 20150529
  Serious: Yes (Hospitalization)
  Sender: FDA-Public Use
  Company Number: None

PATIENT
  Age: 65 Year
  Sex: Male
  Weight: 83.3 kg

DRUGS (4)
  1. METHOTREXATE [Suspect]
     Active Substance: METHOTREXATE
     Dates: end: 20141013
  2. CYTARABINE. [Suspect]
     Active Substance: CYTARABINE
     Dates: end: 20141023
  3. CYCLOPHOSPHAMIDE. [Suspect]
     Active Substance: CYCLOPHOSPHAMIDE
     Dates: end: 20141020
  4. MERCAPTOPURINE. [Suspect]
     Active Substance: MERCAPTOPURINE
     Dates: end: 20141023

REACTIONS (5)
  - Disease recurrence [None]
  - Pyrexia [None]
  - Cellulitis [None]
  - Febrile neutropenia [None]
  - Rash [None]

NARRATIVE: CASE EVENT DATE: 20141024
